FAERS Safety Report 14823930 (Version 1)
Quarter: 2018Q2

REPORT INFORMATION
  Report Type: Spontaneous
  Country: US (occurrence: US)
  Receive Date: 20180428
  Receipt Date: 20180428
  Transmission Date: 20180711
  Serious: No
  Sender: FDA-Public Use
  Company Number: US-009507513-1804USA010469

PATIENT
  Sex: Female

DRUGS (1)
  1. ASMANEX [Suspect]
     Active Substance: MOMETASONE FUROATE
     Dosage: 2 DF, ONCE DAILY, ROUTE: ^ORAL INHALATION^ STRENGTH: 220 MICROGRAM ^60 DOSE 00085134102^
     Dates: start: 20170423

REACTIONS (3)
  - No adverse event [Unknown]
  - Product quality issue [Unknown]
  - Incorrect dose administered by device [Unknown]
